FAERS Safety Report 11612193 (Version 1)
Quarter: 2015Q4

REPORT INFORMATION
  Report Type: Report from Study
  Country: BR (occurrence: BR)
  Receive Date: 20151008
  Receipt Date: 20151008
  Transmission Date: 20160304
  Serious: Yes (Hospitalization)
  Sender: FDA-Public Use
  Company Number: PHHY2015BR120639

PATIENT
  Sex: Male
  Weight: 33 kg

DRUGS (1)
  1. EXJADE [Suspect]
     Active Substance: DEFERASIROX
     Indication: SICKLE CELL ANAEMIA
     Dosage: 1 DF, QOD
     Route: 065

REACTIONS (7)
  - Pneumonia [Unknown]
  - Splenomegaly [Unknown]
  - Hepatomegaly [Unknown]
  - Off label use [Unknown]
  - Cardiomegaly [Unknown]
  - Hepatic siderosis [Unknown]
  - Drug ineffective [Unknown]
